FAERS Safety Report 4709357-5 (Version None)
Quarter: 2005Q3

REPORT INFORMATION
  Report Type: 
  Country: None (occurrence: None)
  Receive Date: 20050706
  Receipt Date: 20050620
  Transmission Date: 20060218
  Serious: Yes (Hospitalization, Other)
  Sender: FDA-Public Use
  Company Number: 2005BL001863

PATIENT
  Age: 76 Year
  Sex: Female
  Weight: 69 kg

DRUGS (11)
  1. LOTEMAX [Suspect]
     Indication: INFLAMMATION
     Dosage: 1 DROP; 4 TIMES A DAY; OPHTHALMIC
     Route: 047
     Dates: start: 20050310, end: 20050315
  2. FLOXAL AUGENTROPFEN (EYE DROPS) [Concomitant]
  3. FLOXAL AUGENSALBE [Concomitant]
  4. L-THYROXIN ^HENNING BERLIN^ [Concomitant]
  5. DURANITRAT [Concomitant]
  6. NIFEHEXAL [Concomitant]
  7. URBASON [Concomitant]
  8. RIOPAN [Concomitant]
  9. PANTOZOL/GFR/ [Concomitant]
  10. DIAMOX #1 [Concomitant]
  11. TELFAST [Concomitant]

REACTIONS (2)
  - ENDOPHTHALMITIS [None]
  - PHARMACEUTICAL PRODUCT COMPLAINT [None]
